FAERS Safety Report 20135820 (Version 1)
Quarter: 2021Q4

REPORT INFORMATION
  Report Type: Spontaneous
  Country: IN (occurrence: IN)
  Receive Date: 20211201
  Receipt Date: 20211201
  Transmission Date: 20220304
  Serious: Yes (Death, Other)
  Sender: FDA-Public Use
  Company Number: IN-009507513-2111IND009537

PATIENT
  Age: 75 Year
  Sex: Male

DRUGS (1)
  1. KEYTRUDA [Suspect]
     Active Substance: PEMBROLIZUMAB
     Indication: Prostate cancer
     Dosage: 6-7 CYCLES
     Route: 042

REACTIONS (4)
  - Neuroleptic malignant syndrome [Fatal]
  - Adverse drug reaction [Fatal]
  - Myasthenia gravis [Unknown]
  - Product use in unapproved indication [Unknown]
